FAERS Safety Report 8612905-6 (Version None)
Quarter: 2012Q3

REPORT INFORMATION
  Report Type: 
  Country: None (occurrence: None)
  Receive Date: 20120822
  Receipt Date: 20111118
  Transmission Date: 20120928
  Serious: No
  Sender: FDA-Public Use
  Company Number: US-ALLERGAN-1115251US

PATIENT
  Age: 85 Year
  Sex: Female

DRUGS (1)
  1. SANCTURA XR [Suspect]
     Indication: PRODUCT USED FOR UNKNOWN INDICATION
     Dosage: UNK
     Route: 048
     Dates: end: 20090101

REACTIONS (2)
  - VULVOVAGINAL BURNING SENSATION [None]
  - DYSURIA [None]
